FAERS Safety Report 8864285 (Version 1)
Quarter: 2012Q4

REPORT INFORMATION
  Report Type: 
  Country: US (occurrence: US)
  Receive Date: 20121024
  Receipt Date: 20121024
  Transmission Date: 20130627
  Serious: No
  Sender: FDA-Public Use
  Company Number: US-AMGEN-USASP2011066697

PATIENT
  Age: 57 Year
  Sex: Female
  Weight: 63.04 kg

DRUGS (9)
  1. ENBREL [Suspect]
     Indication: PRODUCT USED FOR UNKNOWN INDICATION
     Dosage: 50 mg, qwk
     Route: 058
  2. CALTRATE WITH VITAMIN D [Concomitant]
     Route: 048
  3. AZITHROMYCIN [Concomitant]
     Dosage: UNK
  4. VITAMIN E [Concomitant]
     Dosage: 400 IU, UNK
  5. VITAMIN C [Concomitant]
     Dosage: 1000 mg, UNK
     Route: 048
  6. RHINOCORT [Concomitant]
  7. MULTIPLE VITAMINS [Concomitant]
     Route: 048
  8. ASA [Concomitant]
     Dosage: 81 mg, UNK
     Route: 048
  9. LEVOTHYROXIN [Concomitant]
     Dosage: 500 mug, UNK

REACTIONS (2)
  - Stomatitis [Unknown]
  - Nasopharyngitis [Unknown]
